FAERS Safety Report 21738286 (Version 1)
Quarter: 2022Q4

REPORT INFORMATION
  Report Type: Spontaneous
  Country: CN (occurrence: CN)
  Receive Date: 20221216
  Receipt Date: 20221216
  Transmission Date: 20230113
  Serious: Yes (Other)
  Sender: FDA-Public Use
  Company Number: None

PATIENT
  Age: 39 Year
  Sex: Female
  Weight: 50 kg

DRUGS (4)
  1. CYCLOPHOSPHAMIDE [Suspect]
     Active Substance: CYCLOPHOSPHAMIDE
     Indication: Invasive ductal breast carcinoma
     Dosage: 0.85 G, QD, (DILUTED WITH SODIUM CHLORIDE 250 ML), C1-3 CHEMOTHERAPY
     Route: 041
     Dates: start: 20221030, end: 20221030
  2. SODIUM CHLORIDE [Suspect]
     Active Substance: SODIUM CHLORIDE
     Indication: Medication dilution
     Dosage: 250 ML, QD, (USED TO DILUTE CYCLOPHOSPHAMIDE 0.85 G), C1-3 CHEMOTHERAPY
     Route: 041
     Dates: start: 20221030, end: 20221030
  3. SODIUM CHLORIDE [Suspect]
     Active Substance: SODIUM CHLORIDE
     Dosage: 100 ML, QD, (USED TO DILUTE EPIRUBICIN HYDROCHLORIDE 145 MG), C1-3 CHEMOTHERAPY
     Route: 041
     Dates: start: 20221030, end: 20221030
  4. EPIRUBICIN HYDROCHLORIDE [Suspect]
     Active Substance: EPIRUBICIN HYDROCHLORIDE
     Indication: Invasive ductal breast carcinoma
     Dosage: 145 MG, QD, (DILUTED WITH SODIUM CHLORIDE 100 ML), C1-3 CHEMOTHERAPY
     Route: 041
     Dates: start: 20221030, end: 20221030

REACTIONS (1)
  - Myelosuppression [Recovering/Resolving]

NARRATIVE: CASE EVENT DATE: 20221111
